FAERS Safety Report 4312088-7 (Version None)
Quarter: 2004Q1

REPORT INFORMATION
  Report Type: 
  Country: None (occurrence: None)
  Receive Date: 20040304
  Receipt Date: 20040304
  Transmission Date: 20041129
  Serious: Yes (Life-Threatening, Hospitalization, Disabling)
  Sender: FDA-Public Use
  Company Number: None

PATIENT
  Sex: Male
  Weight: 68.0396 kg

DRUGS (1)
  1. ZOLOFT [Suspect]
     Dosage: 50 MG 1 PER DAY ORAL
     Route: 048

REACTIONS (3)
  - IMPAIRED WORK ABILITY [None]
  - INTENTIONAL SELF-INJURY [None]
  - PANIC ATTACK [None]
